FAERS Safety Report 7657099-9 (Version None)
Quarter: 2011Q3

REPORT INFORMATION
  Report Type: 
  Country: None (occurrence: None)
  Receive Date: 20110804
  Receipt Date: 20101119
  Transmission Date: 20111222
  Serious: No
  Sender: FDA-Public Use
  Company Number: US-GLAXOSMITHKLINE-A0894257A

PATIENT
  Age: 82 Year
  Sex: Female

DRUGS (7)
  1. ADVAIR DISKUS 100/50 [Suspect]
     Indication: ASTHMA
     Dosage: 2PUFF TWICE PER DAY
     Route: 055
     Dates: start: 20101108
  2. PREDNISONE [Suspect]
     Dosage: 10MG PER DAY
     Dates: start: 20101108
  3. LISINOPRIL [Concomitant]
  4. HYDROCHLOROTHIAZIDE [Concomitant]
  5. PREDNISONE [Concomitant]
     Dosage: 1MG ALTERNATE DAYS
  6. VENTOLIN HFA [Suspect]
     Indication: ASTHMA
     Dosage: 1PUFF FOUR TIMES PER DAY
     Route: 055
     Dates: start: 20101108
  7. ASPIRIN [Concomitant]

REACTIONS (3)
  - COUGH [None]
  - TREMOR [None]
  - AGITATION [None]
